FAERS Safety Report 11570571 (Version 1)
Quarter: 2015Q3

REPORT INFORMATION
  Report Type: Spontaneous
  Country: FI (occurrence: FI)
  Receive Date: 20150929
  Receipt Date: 20150929
  Transmission Date: 20151125
  Serious: Yes (Hospitalization, Other)
  Sender: FDA-Public Use
  Company Number: FI-ASTRAZENECA-2015SE93357

PATIENT
  Age: 39 Year
  Sex: Female

DRUGS (5)
  1. SEROQUEL [Suspect]
     Active Substance: QUETIAPINE FUMARATE
     Route: 048
  2. SERONIL [Concomitant]
     Active Substance: FLUOXETINE HYDROCHLORIDE
  3. CYTOTEC [Concomitant]
     Active Substance: MISOPROSTOL
  4. ANAFRANIL [Concomitant]
     Active Substance: CLOMIPRAMINE HYDROCHLORIDE
  5. MIFEGYNE [Concomitant]
     Active Substance: MIFEPRISTONE

REACTIONS (3)
  - Foetal death [Unknown]
  - Pre-eclampsia [Unknown]
  - Exposure during pregnancy [Unknown]
